FAERS Safety Report 7664369-7 (Version None)
Quarter: 2011Q3

REPORT INFORMATION
  Report Type: 
  Country: None (occurrence: None)
  Receive Date: 20110806
  Receipt Date: 20110118
  Transmission Date: 20111222
  Serious: No
  Sender: FDA-Public Use
  Company Number: US-ABBOTT-11P-163-0699836-00

PATIENT
  Sex: Female
  Weight: 56.75 kg

DRUGS (8)
  1. ATENOLOL [Concomitant]
     Indication: CARDIAC OPERATION
  2. BENICAR [Concomitant]
     Indication: CARDIAC OPERATION
  3. VITAMIN D [Concomitant]
     Indication: OSTEOPOROSIS
  4. LASIX [Concomitant]
     Indication: PRODUCT USED FOR UNKNOWN INDICATION
  5. CALCIUM ACETATE [Concomitant]
     Indication: OSTEOPOROSIS
  6. ZOCOR [Concomitant]
     Indication: CARDIAC OPERATION
  7. ASPIRIN [Concomitant]
     Indication: CARDIAC OPERATION
  8. NIASPAN [Suspect]
     Indication: LOW DENSITY LIPOPROTEIN INCREASED
     Dates: start: 20110110

REACTIONS (1)
  - PRURITUS [None]
